FAERS Safety Report 8309382-1 (Version None)
Quarter: 2012Q2

REPORT INFORMATION
  Report Type: 
  Country: None (occurrence: None)
  Receive Date: 20120420
  Receipt Date: 20120409
  Transmission Date: 20120825
  Serious: Yes (Hospitalization)
  Sender: FDA-Public Use
  Company Number: 2012AP000343

PATIENT
  Age: 23 Year
  Sex: Female

DRUGS (2)
  1. BUDESONIDE [Suspect]
     Indication: CROHN'S DISEASE
     Dosage: UNKNOWN
  2. MESALAMINE [Suspect]
     Indication: CROHN'S DISEASE

REACTIONS (1)
  - PANCREATITIS ACUTE [None]
